FAERS Safety Report 11233799 (Version 8)
Quarter: 2018Q2

REPORT INFORMATION
  Report Type: Report from Study
  Country: TW (occurrence: TW)
  Receive Date: 20150702
  Receipt Date: 20180413
  Transmission Date: 20180711
  Serious: Yes (Hospitalization, Other)
  Sender: FDA-Public Use
  Company Number: PHHY2015TW077577

PATIENT
  Age: 81 Year
  Sex: Male
  Weight: 57.8 kg

DRUGS (52)
  1. ZOMETA [Suspect]
     Active Substance: ZOLEDRONIC ACID
     Indication: PROPHYLAXIS
  2. CONCOR [Concomitant]
     Active Substance: BISOPROLOL FUMARATE
     Indication: HYPERTENSION
     Dosage: 5 MG, UNK
     Route: 048
     Dates: start: 20131115, end: 20150423
  3. CONCOR [Concomitant]
     Active Substance: BISOPROLOL FUMARATE
     Dosage: 5 MG, UNK
     Route: 048
     Dates: start: 20150717, end: 20150907
  4. NORVASC [Concomitant]
     Active Substance: AMLODIPINE BESYLATE
     Dosage: 5 MG, UNK
     Route: 048
     Dates: start: 20150911, end: 20151008
  5. NORVASC [Concomitant]
     Active Substance: AMLODIPINE BESYLATE
     Dosage: 5 MG, UNK
     Route: 048
     Dates: start: 20151012, end: 20160211
  6. REPAGLINIDE. [Concomitant]
     Active Substance: REPAGLINIDE
     Indication: TYPE 2 DIABETES MELLITUS
     Dosage: 1 MG, UNK
     Route: 048
     Dates: start: 20150422, end: 20150714
  7. INFLUENZA VIRUS [Concomitant]
     Active Substance: INFLUENZA VIRUS VACCINE
     Indication: INFLUENZA
     Dosage: 1 DF (SYRG), UNK
     Route: 030
     Dates: start: 20151113, end: 20151113
  8. KIMODIN [Concomitant]
     Indication: GASTROOESOPHAGEAL REFLUX DISEASE
     Dosage: 20 MG, UNK
     Route: 048
     Dates: start: 20160304, end: 20160331
  9. SENNAPUR [Concomitant]
     Indication: CONSTIPATION
     Dosage: 25 MG, UNK
     Route: 048
     Dates: start: 20150902, end: 20150929
  10. TRAJENTA [Concomitant]
     Active Substance: LINAGLIPTIN
     Indication: HYPOGLYCAEMIA
     Dosage: 5 MG, UNK
     Route: 048
     Dates: start: 20151202, end: 20160412
  11. CONCOR [Concomitant]
     Active Substance: BISOPROLOL FUMARATE
     Indication: HYPERTENSIVE HEART DISEASE
     Dosage: 5 MG, UNK
     Route: 048
     Dates: start: 20150424, end: 20150714
  12. CONCOR [Concomitant]
     Active Substance: BISOPROLOL FUMARATE
     Dosage: 5 MG, UNK
     Route: 048
     Dates: start: 20151012, end: 20160211
  13. GALVUS [Concomitant]
     Active Substance: VILDAGLIPTIN
     Indication: TYPE 2 DIABETES MELLITUS
     Dosage: 50 MG, UNK
     Route: 048
     Dates: start: 20131111, end: 20150421
  14. LASIX [Concomitant]
     Active Substance: FUROSEMIDE
     Indication: OEDEMA PERIPHERAL
     Dosage: 20 MG, UNK
     Route: 048
     Dates: start: 20141112, end: 20150421
  15. NORVASC [Concomitant]
     Active Substance: AMLODIPINE BESYLATE
     Indication: HYPERTENSION
     Dosage: 5 MG, UNK
     Route: 048
     Dates: start: 20140822, end: 20150423
  16. PLAVIX [Concomitant]
     Active Substance: CLOPIDOGREL BISULFATE
     Indication: CEREBROVASCULAR ACCIDENT
     Dosage: 75 MG, UNK
     Route: 048
     Dates: start: 20150424, end: 20150714
  17. PLAVIX [Concomitant]
     Active Substance: CLOPIDOGREL BISULFATE
     Dosage: 75 MG, UNK
     Route: 048
     Dates: start: 20151012, end: 20160211
  18. GASCON [Concomitant]
     Active Substance: DIMETHICONE
     Indication: ABDOMINAL DISTENSION
     Dosage: 40 MG, UNK
     Route: 048
     Dates: start: 20160108, end: 20160223
  19. GASTER [Concomitant]
     Active Substance: FAMOTIDINE
     Indication: GASTROOESOPHAGEAL REFLUX DISEASE
     Dosage: 20 MG, UNK
     Route: 065
     Dates: start: 20150313, end: 20160104
  20. GLUCOBAY [Concomitant]
     Active Substance: ACARBOSE
     Indication: DIABETES MELLITUS
     Dosage: 100 MG, UNK
     Route: 048
     Dates: start: 20120307, end: 20150421
  21. NORVASC [Concomitant]
     Active Substance: AMLODIPINE BESYLATE
     Dosage: 5 MG, UNK
     Route: 048
     Dates: start: 20160224, end: 20160412
  22. METHYCOBAL [Concomitant]
     Active Substance: METHYLCOBALAMIN
     Indication: HYPOAESTHESIA
     Dosage: 500 UG, UNK
     Route: 048
     Dates: start: 20150617, end: 20150714
  23. CONCOR [Concomitant]
     Active Substance: BISOPROLOL FUMARATE
     Dosage: 5 MG, UNK
     Route: 048
     Dates: start: 20150911, end: 20151008
  24. CONCOR [Concomitant]
     Active Substance: BISOPROLOL FUMARATE
     Dosage: 5 MG, UNK
     Route: 048
     Dates: start: 20160224, end: 20160412
  25. GALVUS [Concomitant]
     Active Substance: VILDAGLIPTIN
     Dosage: 50 MG, UNK
     Route: 048
     Dates: start: 20150811, end: 20150929
  26. GASTER [Concomitant]
     Active Substance: FAMOTIDINE
     Dosage: 20 MG, UNK
     Route: 065
     Dates: start: 20160108, end: 20160223
  27. LASIX [Concomitant]
     Active Substance: FUROSEMIDE
     Dosage: 20 MG, UNK
     Route: 048
     Dates: start: 20150902, end: 20150929
  28. LIPITOR [Concomitant]
     Active Substance: ATORVASTATIN CALCIUM
     Dosage: 20 MG, UNK
     Route: 048
     Dates: start: 20150811, end: 20150929
  29. SENNAPUR [Concomitant]
     Dosage: 25 MG, UNK
     Route: 048
     Dates: start: 20151202, end: 20160412
  30. PLAVIX [Concomitant]
     Active Substance: CLOPIDOGREL BISULFATE
     Dosage: 75 MG, UNK
     Route: 048
     Dates: start: 20150717, end: 20150907
  31. FEBURIC [Concomitant]
     Active Substance: FEBUXOSTAT
     Indication: HYPERURICAEMIA
     Dosage: 80 MG, UNK
     Route: 048
     Dates: start: 20140305, end: 20150421
  32. NORVASC [Concomitant]
     Active Substance: AMLODIPINE BESYLATE
     Dosage: 5 MG, UNK
     Route: 048
     Dates: start: 20150717, end: 20150907
  33. PLAVIX [Concomitant]
     Active Substance: CLOPIDOGREL BISULFATE
     Dosage: 75 MG, UNK
     Route: 048
     Dates: start: 20160224, end: 20160412
  34. LIPITOR [Concomitant]
     Active Substance: ATORVASTATIN CALCIUM
     Indication: DYSLIPIDAEMIA
     Dosage: 20 MG, UNK
     Route: 048
     Dates: start: 20150422, end: 20150714
  35. LIPITOR [Concomitant]
     Active Substance: ATORVASTATIN CALCIUM
     Dosage: 20 MG, UNK
     Route: 048
     Dates: start: 20151202, end: 20160412
  36. GASMIN [Concomitant]
     Indication: FLATULENCE
     Dosage: 40 MG, UNK
     Route: 048
     Dates: start: 20160304, end: 20160418
  37. LONZUMIN [Concomitant]
     Indication: VERTIGO
     Dosage: 25 MG, UNK
     Route: 048
     Dates: start: 20150618, end: 20150622
  38. METHYCOBAL [Concomitant]
     Active Substance: METHYLCOBALAMIN
     Dosage: 500 UG, UNK
     Route: 048
     Dates: start: 20151202, end: 20160412
  39. GALVUS [Concomitant]
     Active Substance: VILDAGLIPTIN
     Dosage: 50 MG, UNK
     Route: 048
     Dates: start: 20150422, end: 20150714
  40. LASIX [Concomitant]
     Active Substance: FUROSEMIDE
     Dosage: 20 MG, UNK
     Route: 048
     Dates: start: 20160224, end: 20160322
  41. NORVASC [Concomitant]
     Active Substance: AMLODIPINE BESYLATE
     Dosage: 5 MG, UNK
     Route: 048
     Dates: start: 20150424, end: 20150714
  42. PLAVIX [Concomitant]
     Active Substance: CLOPIDOGREL BISULFATE
     Indication: HYPERTENSIVE HEART DISEASE
     Dosage: 75 MG, UNK
     Route: 048
     Dates: start: 20131115, end: 20150423
  43. REPAGLINIDE. [Concomitant]
     Active Substance: REPAGLINIDE
     Dosage: 1 MG, UNK
     Route: 048
     Dates: start: 20150811, end: 20150929
  44. M.C. SKIN [Concomitant]
     Indication: DRY SKIN
     Dosage: 1 GTT, UNK
     Route: 065
     Dates: start: 20150918, end: 20151015
  45. ZOMETA [Suspect]
     Active Substance: ZOLEDRONIC ACID
     Indication: PLASMA CELL MYELOMA
     Dosage: 3 MG, UNK
     Route: 041
     Dates: start: 20131213, end: 20160304
  46. MAGNESIUM OXIDE. [Concomitant]
     Active Substance: MAGNESIUM OXIDE
     Indication: CONSTIPATION
     Dosage: 1 TID
     Route: 048
     Dates: start: 20150624
  47. PHYLLOCONTIN [Concomitant]
     Active Substance: AMINOPHYLLINE
     Indication: BRONCHITIS
     Dosage: 1 OT, QD
     Route: 065
     Dates: start: 20150629
  48. GASCON [Concomitant]
     Active Substance: DIMETHICONE
     Indication: FLATULENCE
     Dosage: 40 MG, UNK
     Route: 048
     Dates: start: 20150313, end: 20160104
  49. LASIX [Concomitant]
     Active Substance: FUROSEMIDE
     Indication: OEDEMA
     Dosage: 20 MG, UNK
     Route: 048
     Dates: start: 20150617, end: 20150714
  50. PLAVIX [Concomitant]
     Active Substance: CLOPIDOGREL BISULFATE
     Dosage: 75 MG, UNK
     Route: 048
     Dates: start: 20150911, end: 20151008
  51. METHYCOBAL [Concomitant]
     Active Substance: METHYLCOBALAMIN
     Dosage: 500 UG, UNK
     Route: 048
     Dates: start: 20150811, end: 20150929
  52. PNEUMOCOCCAL 13 VALENT VACCINE [Concomitant]
     Active Substance: PNEUMOCOCCAL 13-VALENT CONJUGATE VACCINE
     Indication: PROPHYLAXIS
     Dosage: 1 DF (SYRG), UNK
     Route: 030
     Dates: start: 20150113, end: 20151113

REACTIONS (18)
  - Productive cough [Recovered/Resolved]
  - Productive cough [Recovered/Resolved]
  - Productive cough [Recovered/Resolved]
  - Productive cough [Recovered/Resolved]
  - Pneumonia [Recovered/Resolved]
  - Blood creatinine increased [Unknown]
  - Productive cough [Recovered/Resolved]
  - White blood cell count decreased [Unknown]
  - Productive cough [Recovered/Resolved]
  - Productive cough [Recovered/Resolved]
  - Pneumonia [Recovered/Resolved]
  - Pneumonia [Recovered/Resolved]
  - Cough [Not Recovered/Not Resolved]
  - Haemoglobin decreased [Unknown]
  - Platelet count decreased [Unknown]
  - Pyrexia [Recovered/Resolved]
  - Productive cough [Recovered/Resolved]
  - Pyrexia [Recovered/Resolved]

NARRATIVE: CASE EVENT DATE: 20150410
